FAERS Safety Report 9458454 (Version 1)
Quarter: 2013Q3

REPORT INFORMATION
  Report Type: Spontaneous
  Country: GB (occurrence: GB)
  Receive Date: 20130814
  Receipt Date: 20130814
  Transmission Date: 20140515
  Serious: Yes (Hospitalization)
  Sender: FDA-Public Use
  Company Number: GB-WATSON-2013-14333

PATIENT
  Sex: 0

DRUGS (2)
  1. SERTRALINE HYDROCHLORIDE (UNKNOWN) [Suspect]
     Indication: ANXIETY DISORDER
     Dosage: UNK UNK, UNKNOWN
     Route: 048
     Dates: start: 20130712
  2. COPAXONE [Suspect]
     Indication: PRODUCT USED FOR UNKNOWN INDICATION
     Dosage: 20 MG, UNKNOWN
     Route: 058

REACTIONS (4)
  - Paranoia [Unknown]
  - Confusional state [Unknown]
  - Agitation [Unknown]
  - Anxiety disorder [Unknown]
